FAERS Safety Report 9305113 (Version 1)
Quarter: 2013Q2

REPORT INFORMATION
  Report Type: Spontaneous
  Country: US (occurrence: US)
  Receive Date: 20130523
  Receipt Date: 20130523
  Transmission Date: 20140414
  Serious: Yes (Hospitalization)
  Sender: FDA-Public Use
  Company Number: PHEH2013US010764

PATIENT
  Sex: Female

DRUGS (6)
  1. AMTURNIDE [Suspect]
     Dosage: 1 DF (300MG ALISKIREN/10MG AMLO/12.5MG HCT), QD
  2. ZETIA [Concomitant]
     Dosage: 10 MG, QD
  3. VITAMIN D [Concomitant]
  4. MAGNESIUM [Concomitant]
  5. BIOTIN [Concomitant]
  6. FISH OIL [Concomitant]

REACTIONS (6)
  - Blood potassium decreased [Unknown]
  - Head injury [Unknown]
  - Fall [Unknown]
  - Dizziness [Unknown]
  - Retching [Unknown]
  - Vomiting [Unknown]
